FAERS Safety Report 16074150 (Version 1)
Quarter: 2019Q1

REPORT INFORMATION
  Report Type: Spontaneous
  Country: US (occurrence: US)
  Receive Date: 20190314
  Receipt Date: 20190314
  Transmission Date: 20190418
  Serious: No
  Sender: FDA-Public Use
  Company Number: US-MYLANLABS-2019M1018412

PATIENT
  Sex: Male

DRUGS (3)
  1. ATORVASTATIN CALCIUM TABLETS [Suspect]
     Active Substance: ATORVASTATIN CALCIUM
     Indication: CARDIOVASCULAR EVENT PROPHYLAXIS
     Dosage: 10 MILLIGRAM, AM
     Route: 048
  2. CLOPIDOGREL [Concomitant]
     Active Substance: CLOPIDOGREL BISULFATE
     Indication: CARDIOVASCULAR EVENT PROPHYLAXIS
     Dosage: 75 MILLIGRAM, QD
     Route: 048
  3. ZOLPIDEM [Concomitant]
     Active Substance: ZOLPIDEM\ZOLPIDEM TARTRATE
     Indication: SLEEP DISORDER
     Dosage: 10 MILLIGRAM, AM
     Route: 048

REACTIONS (1)
  - Anger [Not Recovered/Not Resolved]
